FAERS Safety Report 11167046 (Version 1)
Quarter: 2015Q2

REPORT INFORMATION
  Report Type: Spontaneous
  Country: FR (occurrence: None)
  Receive Date: 20150603
  Receipt Date: 20150603
  Transmission Date: 20150821
  Serious: Yes (Life-Threatening)
  Sender: FDA-Public Use
  Company Number: 2015DEPFR00635

PATIENT
  Age: 46 Year
  Sex: Female
  Weight: 46 kg

DRUGS (4)
  1. KEPPRA [Concomitant]
     Active Substance: LEVETIRACETAM
  2. PREDNISONE (PREDNISONE) [Concomitant]
     Active Substance: PREDNISONE
  3. DUROGESIC (FENTANYL) [Concomitant]
     Active Substance: FENTANYL
  4. DEPOCYT [Suspect]
     Active Substance: CYTARABINE
     Indication: METASTASES TO MENINGES
     Dosage: ADMINISTERED ON 06JAN2015, 20JAN2015 AND 04FEB2015
     Route: 037
     Dates: start: 20150106

REACTIONS (2)
  - Back pain [None]
  - Burning sensation [None]

NARRATIVE: CASE EVENT DATE: 20150106
